FAERS Safety Report 5004436-X (Version None)
Quarter: 2006Q2

REPORT INFORMATION
  Report Type: 
  Country: None (occurrence: None)
  Receive Date: 20060517
  Receipt Date: 20060508
  Transmission Date: 20061013
  Serious: Yes (Other)
  Sender: FDA-Public Use
  Company Number: GB-ROCHE-447439

PATIENT

DRUGS (1)
  1. ROFERON-A [Suspect]
     Indication: POLYCYTHAEMIA
     Route: 058

REACTIONS (1)
  - PULMONARY EMBOLISM [None]
